FAERS Safety Report 8409373 (Version 3)
Quarter: 2013Q1

REPORT INFORMATION
  Report Type: Spontaneous
  Country: US (occurrence: US)
  Receive Date: 20120216
  Receipt Date: 20130321
  Transmission Date: 20140127
  Serious: Yes (Hospitalization, Congenital Anomaly, Other)
  Sender: FDA-Public Use
  Company Number: US-PFIZER INC-2012038215

PATIENT
  Sex: Female
  Weight: 3.42 kg

DRUGS (8)
  1. ZOLOFT [Suspect]
     Indication: DEPRESSION
     Dosage: UNK
     Route: 064
  2. ASCORBIC ACID [Concomitant]
     Dosage: 500 MG, 1X/DAY
     Route: 064
  3. IRON [Concomitant]
     Dosage: UNK
     Route: 064
  4. DOCUSATE SODIUM [Concomitant]
     Dosage: UNK
     Route: 064
  5. SYNTHROID [Concomitant]
     Indication: HYPOTHYROIDISM
     Dosage: 50 UG, UNK
     Route: 064
  6. TRIAMCINOLONE ACETONIDE [Concomitant]
     Dosage: UNK
     Route: 064
  7. FOLIC ACID [Concomitant]
     Dosage: 1 MG, 1X/DAY
     Route: 064
  8. PRENATAL VITAMINS [Concomitant]
     Dosage: UNK
     Route: 064

REACTIONS (13)
  - Maternal exposure timing unspecified [Unknown]
  - Pulmonary artery atresia [Unknown]
  - Cleft palate [Unknown]
  - Developmental hip dysplasia [Unknown]
  - Hypoplastic right heart syndrome [Unknown]
  - Patent ductus arteriosus [Unknown]
  - Otitis media chronic [Unknown]
  - Atrial septal defect [Unknown]
  - Tricuspid valve incompetence [Recovered/Resolved]
  - Pulmonary valve stenosis [Unknown]
  - Pyelocaliectasis [Unknown]
  - Right ventricular hypertrophy [Unknown]
  - Cow^s milk intolerance [Unknown]
